FAERS Safety Report 7248142-X (Version None)
Quarter: 2011Q1

REPORT INFORMATION
  Report Type: 
  Country: None (occurrence: None)
  Receive Date: 20110127
  Receipt Date: 20110117
  Transmission Date: 20110831
  Serious: Yes (Hospitalization, Other)
  Sender: FDA-Public Use
  Company Number: FR-BAXTER-2010BH030641

PATIENT
  Sex: Female
  Weight: 10 kg

DRUGS (27)
  1. EXTRANEAL [Suspect]
     Indication: RENAL FAILURE CHRONIC
     Route: 033
     Dates: start: 20090101, end: 20101201
  2. EXTRANEAL [Suspect]
     Route: 033
     Dates: start: 20090101, end: 20101201
  3. EXTRANEAL [Suspect]
     Route: 033
     Dates: start: 20090101, end: 20101201
  4. FOSRENOL [Concomitant]
     Indication: PRODUCT USED FOR UNKNOWN INDICATION
     Route: 065
  5. UVEDOSE [Concomitant]
     Indication: PRODUCT USED FOR UNKNOWN INDICATION
     Route: 065
  6. EXTRANEAL [Suspect]
     Route: 033
     Dates: start: 20090101, end: 20101201
  7. EXTRANEAL [Suspect]
     Route: 033
     Dates: start: 20090101, end: 20101201
  8. ALFACALCIDOL [Concomitant]
     Indication: PRODUCT USED FOR UNKNOWN INDICATION
     Route: 065
  9. LECOCARNIL [Concomitant]
     Indication: PRODUCT USED FOR UNKNOWN INDICATION
     Route: 065
  10. EXTRANEAL [Suspect]
     Route: 033
     Dates: start: 20090101, end: 20101201
  11. EXTRANEAL [Suspect]
     Indication: OFF LABEL USE
     Route: 033
     Dates: start: 20090101, end: 20101201
  12. EXTRANEAL [Suspect]
     Indication: PERITONEAL DIALYSIS
     Route: 033
     Dates: start: 20090101, end: 20101201
  13. EPOETIN ALFA [Concomitant]
     Indication: PRODUCT USED FOR UNKNOWN INDICATION
     Route: 065
  14. ADALAT [Concomitant]
     Indication: BLOOD PRESSURE MANAGEMENT
     Route: 065
  15. CALCIDOSE [Concomitant]
     Indication: PRODUCT USED FOR UNKNOWN INDICATION
     Route: 065
  16. EXTRANEAL [Suspect]
     Route: 033
     Dates: start: 20090101, end: 20101201
  17. CINACALCET [Concomitant]
     Indication: PRODUCT USED FOR UNKNOWN INDICATION
     Route: 065
     Dates: end: 20101201
  18. FUMAFER [Concomitant]
     Indication: PRODUCT USED FOR UNKNOWN INDICATION
     Route: 065
  19. EXTRANEAL [Suspect]
     Route: 033
     Dates: start: 20090101, end: 20101201
  20. EXTRANEAL [Suspect]
     Route: 033
     Dates: start: 20090101, end: 20101201
  21. NORDITROPINE [Concomitant]
     Indication: PRODUCT USED FOR UNKNOWN INDICATION
     Route: 065
  22. EXTRANEAL [Suspect]
     Route: 033
     Dates: start: 20090101, end: 20101201
  23. EXTRANEAL [Suspect]
     Route: 033
     Dates: start: 20090101, end: 20101201
  24. EXTRANEAL [Suspect]
     Route: 033
     Dates: start: 20090101, end: 20101201
  25. EXTRANEAL [Suspect]
     Route: 033
     Dates: start: 20090101, end: 20101201
  26. PHYSIOSOL IN PLASTIC CONTAINER [Concomitant]
     Indication: PERITONEAL DIALYSIS
     Route: 033
  27. MEDICATIONS FOR CHRONIC RENAL INSUFFICIENCY [Concomitant]
     Indication: PRODUCT USED FOR UNKNOWN INDICATION
     Route: 065

REACTIONS (6)
  - ABDOMINAL PAIN [None]
  - PERITONITIS [None]
  - SYSTEMIC INFLAMMATORY RESPONSE SYNDROME [None]
  - PYREXIA [None]
  - SEPSIS [None]
  - GASTROENTERITIS VIRAL [None]
